FAERS Safety Report 9667723 (Version 1)
Quarter: 2013Q4

REPORT INFORMATION
  Report Type: Spontaneous
  Country: BR (occurrence: BR)
  Receive Date: 20131104
  Receipt Date: 20131104
  Transmission Date: 20140711
  Serious: Yes (Other)
  Sender: FDA-Public Use
  Company Number: BR-PFIZER INC-2013310996

PATIENT
  Sex: 0

DRUGS (1)
  1. PRISTIQ [Suspect]
     Dosage: 100 MG, UNK

REACTIONS (6)
  - Discomfort [Unknown]
  - Paraesthesia [Unknown]
  - Dizziness [Unknown]
  - Nausea [Unknown]
  - Crying [Unknown]
  - Impaired work ability [Unknown]
